FAERS Safety Report 7754545-7 (Version None)
Quarter: 2011Q3

REPORT INFORMATION
  Report Type: 
  Country: None (occurrence: None)
  Receive Date: 20110915
  Receipt Date: 20110913
  Transmission Date: 20111222
  Serious: Yes (Other)
  Sender: FDA-Public Use
  Company Number: FR-BAYER-2011-086058

PATIENT
  Age: 9 Year
  Sex: Male

DRUGS (2)
  1. BILTRICIDE [Suspect]
     Dosage: 2ND DOSE (NOS)
  2. BILTRICIDE [Suspect]
     Indication: SCHISTOSOMIASIS
     Dosage: 40 MG/KG, ONCE

REACTIONS (4)
  - GAIT DISTURBANCE [None]
  - EXTENSOR PLANTAR RESPONSE [None]
  - NEUROLOGICAL DECOMPENSATION [None]
  - EOSINOPHIL COUNT INCREASED [None]
